FAERS Safety Report 4335718-2 (Version None)
Quarter: 2004Q1

REPORT INFORMATION
  Report Type: 
  Country: None (occurrence: None)
  Receive Date: 20040329
  Receipt Date: 20031120
  Transmission Date: 20041129
  Serious: No
  Sender: FDA-Public Use
  Company Number: USA031153072

PATIENT
  Age: 36 Year
  Sex: Female
  Weight: 59 kg

DRUGS (3)
  1. STRATTERA [Suspect]
     Indication: ATTENTION DEFICIT/HYPERACTIVITY DISORDER
     Dosage: 80  MG/DAY
     Dates: start: 20031001
  2. METHADONE HCL [Concomitant]
  3. MACRODANTIN [Concomitant]

REACTIONS (1)
  - PLATELET COUNT INCREASED [None]
